FAERS Safety Report 19602938 (Version 2)
Quarter: 2021Q3

REPORT INFORMATION
  Report Type: Spontaneous
  Country: GB (occurrence: GB)
  Receive Date: 20210723
  Receipt Date: 20210727
  Transmission Date: 20211014
  Serious: Yes (Other)
  Sender: FDA-Public Use
  Company Number: GB-PFIZER INC-2021895706

PATIENT
  Age: 32 Year
  Sex: Female

DRUGS (6)
  1. REMSIMA [Suspect]
     Active Substance: INFLIXIMAB
     Dosage: UNK
     Route: 065
  2. BACTERIOSTATIC SODIUM CHLORIDE [Suspect]
     Active Substance: SODIUM CHLORIDE
     Indication: MEDICATION DILUTION
     Dosage: 230 DF
     Route: 065
  3. BACTERIOSTATIC SODIUM CHLORIDE [Suspect]
     Active Substance: SODIUM CHLORIDE
     Dosage: 230 DF
     Route: 065
  4. WATER FOR INJECTION [Suspect]
     Active Substance: WATER
     Indication: MEDICATION DILUTION
     Dosage: 236 DF
     Route: 065
  5. WATER FOR INJECTION [Suspect]
     Active Substance: WATER
     Dosage: 236 DF
     Route: 065
  6. REMSIMA [Suspect]
     Active Substance: INFLIXIMAB
     Dosage: UNK
     Route: 065

REACTIONS (4)
  - Staphylococcal infection [Unknown]
  - Pyrexia [Unknown]
  - Ear infection staphylococcal [Unknown]
  - Infection [Unknown]

NARRATIVE: CASE EVENT DATE: 20210623
